FAERS Safety Report 16419278 (Version 1)
Quarter: 2019Q2

REPORT INFORMATION
  Report Type: Spontaneous
  Country: US (occurrence: US)
  Receive Date: 20190612
  Receipt Date: 20190612
  Transmission Date: 20190711
  Serious: Yes (Other)
  Sender: FDA-Public Use
  Company Number: US-EMCURE PHARMACEUTICALS LTD-2019-EPL-0277

PATIENT
  Age: 30 Year
  Sex: Female

DRUGS (5)
  1. AMIKACIN SULFATE. [Suspect]
     Active Substance: AMIKACIN SULFATE
     Indication: TUBERCULOSIS
     Dosage: 850 MILLIGRAM MONDAY THROUGH FRIDAY
  2. MOXIFLOXACIN. [Suspect]
     Active Substance: MOXIFLOXACIN
     Indication: TUBERCULOSIS
     Dosage: 400 MILLIGRAM DAILY
  3. LINEZOLID. [Suspect]
     Active Substance: LINEZOLID
     Indication: TUBERCULOSIS
     Dosage: 600 MILLIGRAM, DAILY
  4. PYRAZINAMIDE. [Suspect]
     Active Substance: PYRAZINAMIDE
     Indication: TUBERCULOSIS
     Dosage: 1000 MILLIGRAM, DAILY
  5. CYCLOSERINE. [Suspect]
     Active Substance: CYCLOSERINE
     Indication: TUBERCULOSIS
     Dosage: 250 MILLIGRAM, DAILY WITH PLANS TO INCREASE THE DOSE TO 500 MG

REACTIONS (4)
  - Condition aggravated [Unknown]
  - Catheter site hypersensitivity [Unknown]
  - Acute kidney injury [Recovered/Resolved]
  - Tongue discolouration [Unknown]
